FAERS Safety Report 5976085-8 (Version None)
Quarter: 2008Q4

REPORT INFORMATION
  Report Type: 
  Country: None (occurrence: None)
  Receive Date: 20081124
  Receipt Date: 20080529
  Transmission Date: 20090506
  Serious: Yes (Other)
  Sender: FDA-Public Use
  Company Number: 48857

PATIENT
  Age: 79 Year
  Sex: Male
  Weight: 83.0083 kg

DRUGS (1)
  1. AMIODARONE HCL [Suspect]
     Dates: start: 20080329, end: 20080414

REACTIONS (1)
  - ANOREXIA [None]
